FAERS Safety Report 6139307-9 (Version None)
Quarter: 2009Q2

REPORT INFORMATION
  Report Type: 
  Country: None (occurrence: None)
  Receive Date: 20090401
  Receipt Date: 20090324
  Transmission Date: 20091009
  Serious: Yes (Death, Hospitalization)
  Sender: FDA-Public Use
  Company Number: US-AMGEN-US319081

PATIENT
  Sex: Male

DRUGS (12)
  1. NPLATE [Suspect]
     Indication: IDIOPATHIC THROMBOCYTOPENIC PURPURA
     Route: 058
     Dates: start: 20080929, end: 20080929
  2. PREDNISONE [Concomitant]
     Route: 065
  3. PREDNISONE [Concomitant]
     Route: 048
     Dates: start: 20080929
  4. METOPROLOL [Concomitant]
     Route: 048
  5. PANTOPRAZOLE SODIUM [Concomitant]
     Route: 048
  6. DANAZOL [Concomitant]
     Route: 065
     Dates: start: 20080801, end: 20080829
  7. DANAZOL [Concomitant]
     Route: 048
  8. SIMVASTATIN [Concomitant]
  9. ASCORBIC ACID [Concomitant]
  10. FOLIC ACID [Concomitant]
  11. ENALAPRIL [Concomitant]
     Dates: end: 20080923
  12. LISINOPRIL [Concomitant]
     Route: 048

REACTIONS (8)
  - ABDOMINAL PAIN UPPER [None]
  - ADRENAL MASS [None]
  - ANEURYSM RUPTURED [None]
  - AORTIC ANEURYSM [None]
  - CONTUSION [None]
  - DIARRHOEA [None]
  - LUNG NEOPLASM [None]
  - OEDEMA PERIPHERAL [None]
